FAERS Safety Report 15366491 (Version 1)
Quarter: 2018Q3

REPORT INFORMATION
  Report Type: Spontaneous
  Country: US (occurrence: US)
  Receive Date: 20180831
  Receipt Date: 20180831
  Transmission Date: 20181010
  Serious: Yes (Hospitalization)
  Sender: FDA-Public Use
  Company Number: None

PATIENT
  Age: 84 Year
  Sex: Female
  Weight: 86 kg

DRUGS (18)
  1. ACETAMINOPHEN 1000 MG [Concomitant]
  2. CALCITRIOL 0.25 MG [Concomitant]
  3. DOCUSATE 100 MG [Concomitant]
  4. ESCITALOPRAM [Concomitant]
     Active Substance: ESCITALOPRAM OXALATE
  5. HYDRALAZINE 50 MG [Concomitant]
  6. APIXABAN [Suspect]
     Active Substance: APIXABAN
     Indication: ATRIAL FIBRILLATION
     Route: 048
  7. DIGOXIN 0.125 MG [Concomitant]
     Active Substance: DIGOXIN
  8. ASPIRIN. [Suspect]
     Active Substance: ASPIRIN
     Indication: CORONARY ARTERY DISEASE
     Route: 048
  9. CYANOCOBALAMIN 1000 MG [Concomitant]
  10. OMEPRAZOLE 40 MG [Concomitant]
     Active Substance: OMEPRAZOLE
  11. LEVOTHYROXINE 175 MCG [Concomitant]
  12. METOPROLOL 50 MG [Concomitant]
     Active Substance: METOPROLOL
  13. CHOLECALCIFEROL 1000 UNITS [Concomitant]
  14. FUROSEMIDE 20 MG [Concomitant]
     Active Substance: FUROSEMIDE
  15. INSULIN ASPART 15 UNITS [Concomitant]
  16. CALCIUM 500 MG [Concomitant]
  17. GEMFIBROZIL 600 MG [Concomitant]
     Active Substance: GEMFIBROZIL
  18. INSULIN LANTUS 20 UNITS [Concomitant]

REACTIONS (9)
  - Dyspnoea [None]
  - Arteriovenous malformation [None]
  - Haemoglobin decreased [None]
  - Asthenia [None]
  - Fatigue [None]
  - Abdominal pain upper [None]
  - Occult blood positive [None]
  - Dizziness [None]
  - Melaena [None]

NARRATIVE: CASE EVENT DATE: 20180702
